FAERS Safety Report 18124927 (Version 3)
Quarter: 2021Q1

REPORT INFORMATION
  Report Type: Spontaneous
  Country: US (occurrence: US)
  Receive Date: 20200807
  Receipt Date: 20210115
  Transmission Date: 20210419
  Serious: Yes (Hospitalization, Other)
  Sender: FDA-Public Use
  Company Number: US-GILEAD-2020-0487829

PATIENT
  Age: 63 Year
  Sex: Female
  Weight: 53.06 kg

DRUGS (16)
  1. TRUVADA [Suspect]
     Active Substance: EMTRICITABINE\TENOFOVIR DISOPROXIL FUMARATE
     Indication: HIV INFECTION
     Dosage: UNK
     Route: 065
     Dates: start: 20110429, end: 201306
  2. AMOXICILLIN. [Concomitant]
     Active Substance: AMOXICILLIN
  3. FAMOTIDINE. [Concomitant]
     Active Substance: FAMOTIDINE
  4. LANSOPRAZOLE. [Concomitant]
     Active Substance: LANSOPRAZOLE
  5. RANITIDINE. [Concomitant]
     Active Substance: RANITIDINE
  6. REYATAZ [Concomitant]
     Active Substance: ATAZANAVIR SULFATE
  7. PENICILLIN [Concomitant]
     Active Substance: PENICILLIN
  8. HEPARIN [Concomitant]
     Active Substance: HEPARIN SODIUM
  9. ACETAMINOPHEN. [Concomitant]
     Active Substance: ACETAMINOPHEN
  10. GENVOYA [Concomitant]
     Active Substance: COBICISTAT\ELVITEGRAVIR\EMTRICITABINE\TENOFOVIR ALAFENAMIDE FUMARATE
  11. ESOMEPRAZOLE. [Concomitant]
     Active Substance: ESOMEPRAZOLE MAGNESIUM
  12. OMEPRAZOLE. [Concomitant]
     Active Substance: OMEPRAZOLE
  13. NORVIR [Concomitant]
     Active Substance: RITONAVIR
  14. FLEET LAXATIVE [Concomitant]
  15. LASIX [Concomitant]
     Active Substance: FUROSEMIDE
  16. JULUCA [Concomitant]
     Active Substance: DOLUTEGRAVIR SODIUM\RILPIVIRINE HYDROCHLORIDE
     Indication: HIV INFECTION

REACTIONS (10)
  - Tooth loss [Unknown]
  - Economic problem [Unknown]
  - Life support [Unknown]
  - Mood swings [Recovered/Resolved]
  - Chronic kidney disease [Not Recovered/Not Resolved]
  - Depression [Unknown]
  - Renal failure [Unknown]
  - Osteoporosis [Unknown]
  - Anxiety [Unknown]
  - Emotional distress [Unknown]

NARRATIVE: CASE EVENT DATE: 2013
